FAERS Safety Report 4301720-X (Version None)
Quarter: 2004Q1

REPORT INFORMATION
  Report Type: 
  Country: None (occurrence: None)
  Receive Date: 20040218
  Receipt Date: 20031114
  Transmission Date: 20041129
  Serious: Yes (Other)
  Sender: FDA-Public Use
  Company Number: 2003-11-1326

PATIENT

DRUGS (1)
  1. PEG-INTRON [Suspect]
     Route: 058
     Dates: start: 20031107

REACTIONS (1)
  - PANCREATITIS [None]
